FAERS Safety Report 25643869 (Version 4)
Quarter: 2025Q4

REPORT INFORMATION
  Report Type: Spontaneous
  Country: EU (occurrence: EU)
  Receive Date: 20250805
  Receipt Date: 20251119
  Transmission Date: 20260118
  Serious: Yes (Other)
  Sender: AUROBINDO
  Company Number: EU-AUROBINDO-AUR-APL-2025-039938

PATIENT
  Age: 50 Year
  Sex: Female

DRUGS (4)
  1. TAMOXIFEN CITRATE [Suspect]
     Active Substance: TAMOXIFEN CITRATE
     Indication: Hormone receptor positive breast cancer
     Dosage: 20 MILLIGRAM
  2. TAMOXIFEN [Suspect]
     Active Substance: TAMOXIFEN
     Indication: Hormone receptor positive breast cancer
     Dosage: 20 MILLIGRAM
  3. TAMOXIFEN CITRATE [Suspect]
     Active Substance: TAMOXIFEN CITRATE
     Indication: Hormone receptor positive breast cancer
     Dosage: 20 MILLIGRAM
  4. NOLVADEX [Suspect]
     Active Substance: TAMOXIFEN CITRATE
     Indication: Hormone receptor positive breast cancer
     Dosage: UNK (TWO TABLETS ON THE MORNING AND THE EVENING)
     Route: 065

REACTIONS (11)
  - Vaginal discharge [Not Recovered/Not Resolved]
  - Alopecia [Not Recovered/Not Resolved]
  - Vascular fragility [Not Recovered/Not Resolved]
  - Abnormal weight gain [Not Recovered/Not Resolved]
  - Rosacea [Not Recovered/Not Resolved]
  - Cataract [Not Recovered/Not Resolved]
  - Insomnia [Not Recovered/Not Resolved]
  - Hot flush [Recovering/Resolving]
  - Condition aggravated [Recovering/Resolving]
  - Myalgia [Recovering/Resolving]
  - Bone pain [Recovering/Resolving]

NARRATIVE: CASE EVENT DATE: 20240101
